FAERS Safety Report 13787109 (Version 4)
Quarter: 2017Q4

REPORT INFORMATION
  Report Type: Spontaneous
  Country: US (occurrence: US)
  Receive Date: 20170725
  Receipt Date: 20171020
  Transmission Date: 20180320
  Serious: No
  Sender: FDA-Public Use
  Company Number: US-GLAXOSMITHKLINE-US2017GSK113867

PATIENT
  Sex: Male

DRUGS (2)
  1. NASOCORT [Concomitant]
     Active Substance: BUDESONIDE
  2. ADVAIR DISKUS [Suspect]
     Active Substance: FLUTICASONE PROPIONATE\SALMETEROL XINAFOATE
     Indication: ASTHMA
     Dosage: 1 PUFF(S), BID
     Route: 055
     Dates: start: 201608

REACTIONS (7)
  - Adverse event [Unknown]
  - Pulmonary pain [Unknown]
  - Product quality issue [Unknown]
  - Underdose [Unknown]
  - Device issue [Unknown]
  - Therapeutic response decreased [Unknown]
  - Extra dose administered [Unknown]
